FAERS Safety Report 13989513 (Version 1)
Quarter: 2017Q3

REPORT INFORMATION
  Report Type: Other
  Country: CA (occurrence: CA)
  Receive Date: 20170920
  Receipt Date: 20170920
  Transmission Date: 20171128
  Serious: Yes (Other)
  Sender: FDA-Public Use
  Company Number: CA-APOTEX-2017AP018280

PATIENT
  Age: 46 Year
  Sex: Female

DRUGS (3)
  1. APO-CIPROFLOX [Suspect]
     Active Substance: CIPROFLOXACIN
     Indication: URINARY TRACT INFECTION
     Route: 065
  2. ENBREL [Suspect]
     Active Substance: ETANERCEPT
     Indication: PSORIASIS
  3. ENBREL [Suspect]
     Active Substance: ETANERCEPT
     Indication: PSORIATIC ARTHROPATHY
     Dosage: 50 MG, Q.WK.
     Route: 065

REACTIONS (11)
  - Adverse reaction [Recovered/Resolved]
  - Nephrolithiasis [Recovered/Resolved]
  - Urinary tract infection [Recovered/Resolved]
  - Papule [Recovered/Resolved]
  - Psoriasis [Recovered/Resolved]
  - Single functional kidney [Recovered/Resolved]
  - Colitis [Recovered/Resolved]
  - Arthritis [Recovered/Resolved]
  - Erythema [Recovered/Resolved]
  - Stress [Recovered/Resolved]
  - Rash [Recovered/Resolved]
